FAERS Safety Report 6672148-2 (Version None)
Quarter: 2010Q2

REPORT INFORMATION
  Report Type: 
  Country: None (occurrence: None)
  Receive Date: 20100407
  Receipt Date: 20100407
  Transmission Date: 20101027
  Serious: Yes (Death, Hospitalization)
  Sender: FDA-Public Use
  Company Number: None

PATIENT
  Sex: Male
  Weight: 100.2 kg

DRUGS (12)
  1. SORAFENIB 400 MG BID BAYER [Suspect]
     Indication: PROSTATE CANCER
     Dosage: 400 MG BID PO
     Route: 048
     Dates: start: 20091130, end: 20100331
  2. DOCETAXEL [Concomitant]
  3. PREDNISONE [Concomitant]
  4. COUMADIN [Concomitant]
  5. DEXAMETHASONE [Concomitant]
  6. DIGOXIN [Concomitant]
  7. GLYBURIDE [Concomitant]
  8. LASIX [Concomitant]
  9. METOPROLOL TARTRATE [Concomitant]
  10. MOBIC [Concomitant]
  11. M.V.I. [Concomitant]
  12. VYTORIN [Concomitant]

REACTIONS (1)
  - HOSPITALISATION [None]
